FAERS Safety Report 20903238 (Version 3)
Quarter: 2022Q3

REPORT INFORMATION
  Report Type: Report from Study
  Country: US (occurrence: US)
  Receive Date: 20220601
  Receipt Date: 20220705
  Transmission Date: 20221027
  Serious: Yes (Other)
  Sender: FDA-Public Use
  Company Number: US-SEATTLE GENETICS-2022SGN05173

PATIENT
  Sex: Female

DRUGS (6)
  1. TUCATINIB [Suspect]
     Active Substance: TUCATINIB
     Indication: Breast cancer female
     Dosage: UNK
     Route: 065
  2. TUCATINIB [Suspect]
     Active Substance: TUCATINIB
     Dosage: UNK
     Route: 065
  3. TUCATINIB [Suspect]
     Active Substance: TUCATINIB
     Dosage: UNK
     Route: 065
  4. TUCATINIB [Suspect]
     Active Substance: TUCATINIB
     Dosage: UNK
     Route: 065
  5. CAPECITABINE [Suspect]
     Active Substance: CAPECITABINE
     Indication: Breast cancer female
     Dosage: 500 MG, QAM (7 DAYS ON, 7 DAYS OFF)
     Route: 065
  6. CAPECITABINE [Suspect]
     Active Substance: CAPECITABINE
     Dosage: 1000 MG, QHS (7 DAYS ON, 7 DAYS OFF)
     Route: 065

REACTIONS (12)
  - Neuropathy peripheral [Unknown]
  - Hepatitis [Unknown]
  - Headache [Unknown]
  - Skin disorder [Unknown]
  - Thirst [Unknown]
  - Hepatic pain [Unknown]
  - Liver function test abnormal [Unknown]
  - Pain [Unknown]
  - Emotional disorder [Unknown]
  - Blood bilirubin abnormal [Unknown]
  - Inappropriate schedule of product administration [Unknown]
  - Diarrhoea [Unknown]
